FAERS Safety Report 24899928 (Version 1)
Quarter: 2025Q1

REPORT INFORMATION
  Report Type: Spontaneous
  Country: US (occurrence: None)
  Receive Date: 20250129
  Receipt Date: 20250129
  Transmission Date: 20250409
  Serious: Yes (Hospitalization)
  Sender: FDA-CTU
  Company Number: None

PATIENT
  Age: 62 Year
  Sex: Female
  Weight: 58.3 kg

DRUGS (1)
  1. LOVENOX [Suspect]
     Active Substance: ENOXAPARIN SODIUM

REACTIONS (4)
  - Haematemesis [None]
  - Abdominal pain [None]
  - Vascular stent thrombosis [None]
  - Metastases to biliary tract [None]

NARRATIVE: CASE EVENT DATE: 20241208
